FAERS Safety Report 16895054 (Version 1)
Quarter: 2019Q4

REPORT INFORMATION
  Report Type: Report from Study
  Country: JP (occurrence: JP)
  Receive Date: 20191008
  Receipt Date: 20191008
  Transmission Date: 20200122
  Serious: Yes (Death)
  Sender: FDA-Public Use
  Company Number: JP-PFIZER INC-2019429595

PATIENT

DRUGS (3)
  1. GEMCITABINE HYDROCHLORIDE. [Suspect]
     Active Substance: GEMCITABINE HYDROCHLORIDE
     Dosage: 1000 MG/M2, ON DAYS 1, 8, AND 15 EVERY 4 WEEKS
     Route: 041
  2. GEMCITABINE HYDROCHLORIDE. [Suspect]
     Active Substance: GEMCITABINE HYDROCHLORIDE
     Indication: BILE DUCT CANCER
     Dosage: 1000 MG/M2, CYCLIC (INFUSION ON DAYS 1 AND 8; THIS REGIMEN WAS REPEATED EVERY 3 WEEKS)
     Route: 041
  3. CISPLATIN. [Suspect]
     Active Substance: CISPLATIN
     Indication: BILE DUCT CANCER
     Dosage: 25 MG/M2, CYCLIC (INFUSION ON DAYS 1 AND 8; THIS REGIMEN WAS REPEATED EVERY 3 WEEKS)
     Route: 041

REACTIONS (2)
  - Liver abscess [Fatal]
  - Disseminated intravascular coagulation [Fatal]
